FAERS Safety Report 4477032-0 (Version None)
Quarter: 2004Q4

REPORT INFORMATION
  Report Type: 
  Country: None (occurrence: None)
  Receive Date: 20041018
  Receipt Date: 20041005
  Transmission Date: 20050328
  Serious: Yes (Other)
  Sender: FDA-Public Use
  Company Number: US-JNJFOC-20041001872

PATIENT
  Age: 45 Year
  Sex: Female
  Weight: 50.35 kg

DRUGS (3)
  1. TOPAMAX [Suspect]
     Route: 049
  2. TOPAMAX [Suspect]
     Route: 049
  3. TOPAMAX [Suspect]
     Route: 049

REACTIONS (8)
  - BRONCHITIS [None]
  - CIRCADIAN RHYTHM SLEEP DISORDER [None]
  - DRUG INEFFECTIVE [None]
  - HYPOTONIA [None]
  - PANIC ATTACK [None]
  - SPEECH DISORDER [None]
  - TREATMENT NONCOMPLIANCE [None]
  - WEIGHT DECREASED [None]
